FAERS Safety Report 21447610 (Version 1)
Quarter: 2022Q4

REPORT INFORMATION
  Report Type: Spontaneous
  Country: NL (occurrence: NL)
  Receive Date: 20221012
  Receipt Date: 20221012
  Transmission Date: 20230112
  Serious: Yes (Hospitalization, Disabling, Other)
  Sender: FDA-Public Use
  Company Number: NL-LUNDBECK-DKLU3053134

PATIENT
  Sex: Female

DRUGS (1)
  1. ESCITALOPRAM OXALATE [Suspect]
     Active Substance: ESCITALOPRAM OXALATE
     Indication: Product used for unknown indication
     Dosage: DAILY DOSE: 8-13 DROPS
     Dates: start: 201811, end: 20200910

REACTIONS (32)
  - Gait inability [Recovering/Resolving]
  - Balance disorder [Recovering/Resolving]
  - Blood pressure fluctuation [Recovering/Resolving]
  - Blood potassium decreased [Recovering/Resolving]
  - Urine ketone body [Recovering/Resolving]
  - Cortisol increased [Recovering/Resolving]
  - Blood glucose increased [Recovering/Resolving]
  - Ventricular extrasystoles [Recovering/Resolving]
  - Autonomic nervous system imbalance [Recovering/Resolving]
  - Hypotension [Recovering/Resolving]
  - Muscular weakness [Recovering/Resolving]
  - Fall [Recovering/Resolving]
  - Hallucination [Recovered/Resolved with Sequelae]
  - Tremor [Recovering/Resolving]
  - Tachycardia [Recovering/Resolving]
  - Motion sickness [Recovered/Resolved with Sequelae]
  - Blepharospasm [Recovered/Resolved with Sequelae]
  - Miosis [Recovered/Resolved with Sequelae]
  - Cognitive disorder [Recovered/Resolved with Sequelae]
  - Intrusive thoughts [Recovered/Resolved with Sequelae]
  - Emotional disorder [Recovered/Resolved with Sequelae]
  - Judgement impaired [Recovered/Resolved with Sequelae]
  - Temperature intolerance [Recovered/Resolved]
  - Rash erythematous [Recovered/Resolved]
  - Bruxism [Recovered/Resolved with Sequelae]
  - Unevaluable event [Recovered/Resolved with Sequelae]
  - Memory impairment [Recovered/Resolved with Sequelae]
  - Flushing [Recovered/Resolved]
  - Fatigue [Recovered/Resolved with Sequelae]
  - Muscle spasms [Recovered/Resolved with Sequelae]
  - Vomiting [Recovered/Resolved with Sequelae]
  - Nausea [Recovered/Resolved with Sequelae]

NARRATIVE: CASE EVENT DATE: 20190101
